FAERS Safety Report 6130980-8 (Version None)
Quarter: 2009Q1

REPORT INFORMATION
  Report Type: 
  Country: None (occurrence: None)
  Receive Date: 20090323
  Receipt Date: 20090311
  Transmission Date: 20090719
  Serious: Yes (Other)
  Sender: FDA-Public Use
  Company Number: 230135K09CAN

PATIENT
  Sex: Female

DRUGS (4)
  1. REBIF [Suspect]
     Indication: MULTIPLE SCLEROSIS
     Dosage: 22 MCG, 3 IN 1 WEEKS
     Dates: start: 20000306
  2. CRESTOR [Concomitant]
  3. EZETIMIBE [Concomitant]
  4. PROZAC [Concomitant]

REACTIONS (6)
  - FIBROADENOMA OF BREAST [None]
  - LACERATION [None]
  - PAIN OF SKIN [None]
  - PSORIASIS [None]
  - SKIN DISORDER [None]
  - UTERINE LEIOMYOMA [None]
